FAERS Safety Report 10885954 (Version 3)
Quarter: 2015Q2

REPORT INFORMATION
  Report Type: Spontaneous
  Country: None (occurrence: None)
  Receive Date: 20150302
  Receipt Date: 20150611
  Transmission Date: 20150821
  Serious: Yes (Other)
  Sender: FDA-Public Use
  Company Number: 2015020076

PATIENT
  Age: 87 Year
  Sex: Male

DRUGS (11)
  1. SEROQUEL [Concomitant]
     Active Substance: QUETIAPINE FUMARATE
  2. ZYLORIC (ALLOPURINOL) [Concomitant]
     Active Substance: ALLOPURINOL
  3. DOBETIN (CYANOCOBALAMIN) [Concomitant]
  4. TRITTICO (TRAZODONE HYDROCHLORIDE) [Suspect]
     Active Substance: TRAZODONE HYDROCHLORIDE
     Route: 048
     Dates: start: 20141121, end: 20141129
  5. LASIX [Concomitant]
     Active Substance: FUROSEMIDE
  6. LANSOX (LANSOPRAZOLE) [Concomitant]
     Active Substance: LANSOPRAZOLE
  7. MEDROL [Concomitant]
     Active Substance: METHYLPREDNISOLONE
  8. CARDICOR (BISOPROLOL FUMARATE) [Concomitant]
  9. FOLINA (FOLIC ACID) [Concomitant]
     Active Substance: FOLIC ACID
  10. ZOLPIDEM TARTRATE (ZOLPIDEM TARTRATE) [Suspect]
     Active Substance: ZOLPIDEM TARTRATE
     Route: 048
     Dates: start: 20141121, end: 20141129
  11. SERENASE [Suspect]
     Active Substance: HALOPERIDOL
     Route: 048
     Dates: start: 20141121, end: 20141129

REACTIONS (5)
  - Overdose [None]
  - Miosis [None]
  - Sopor [None]
  - Depressed level of consciousness [None]
  - Toxicity to various agents [None]

NARRATIVE: CASE EVENT DATE: 20141129
